FAERS Safety Report 14697817 (Version 1)
Quarter: 2018Q1

REPORT INFORMATION
  Report Type: Spontaneous
  Country: US (occurrence: US)
  Receive Date: 20180330
  Receipt Date: 20180330
  Transmission Date: 20180509
  Serious: No
  Sender: FDA-Public Use
  Company Number: US-SA-2018SA023348

PATIENT
  Age: 26 Year
  Sex: Female
  Weight: 45.35 kg

DRUGS (3)
  1. ALLEGRA [Suspect]
     Active Substance: FEXOFENADINE HYDROCHLORIDE
     Route: 065
  2. HUMIRA [Suspect]
     Active Substance: ADALIMUMAB
     Indication: COLITIS ULCERATIVE
     Route: 058
     Dates: start: 20090718
  3. HUMIRA [Suspect]
     Active Substance: ADALIMUMAB
     Indication: BORDERLINE PERSONALITY DISORDER
     Route: 058
     Dates: start: 20090718

REACTIONS (3)
  - Rash generalised [Recovering/Resolving]
  - Rash pruritic [Not Recovered/Not Resolved]
  - Hypersensitivity [Unknown]

NARRATIVE: CASE EVENT DATE: 200908
